FAERS Safety Report 18551930 (Version 2)
Quarter: 2020Q4

REPORT INFORMATION
  Report Type: Report from Study
  Country: ES (occurrence: ES)
  Receive Date: 20201126
  Receipt Date: 20201223
  Transmission Date: 20210114
  Serious: Yes (Other)
  Sender: FDA-Public Use
  Company Number: ES-ROCHE-2713120

PATIENT
  Age: 48 Year
  Sex: Female

DRUGS (4)
  1. PERTUZUMAB. [Suspect]
     Active Substance: PERTUZUMAB
     Indication: BREAST CANCER
     Dosage: LAST DOSE BEFORE SAE 26/OCT/2020
     Route: 042
     Dates: start: 20191003, end: 20201026
  2. CARBOPLATIN. [Suspect]
     Active Substance: CARBOPLATIN
     Indication: BREAST CANCER
     Dosage: LAST DOSE PRIOR TO SAE 23/JAN/2020 TOTAL NO OF COURSES 12
     Route: 042
     Dates: start: 20191003, end: 20200123
  3. TRASTUZUMAB. [Suspect]
     Active Substance: TRASTUZUMAB
     Indication: BREAST CANCER
     Dosage: LAST DOSE BEFORE SAE 26/OCT/2020
     Route: 042
     Dates: start: 20191003, end: 20201026
  4. PACLITAXEL. [Suspect]
     Active Substance: PACLITAXEL
     Indication: BREAST CANCER
     Dosage: LAST DOSE BEFORE SAE ON 23/JAN/2020, TOTAL NO OF COURSES 12
     Route: 042
     Dates: start: 20191003, end: 20200123

REACTIONS (1)
  - SARS-CoV-2 test positive [Not Recovered/Not Resolved]

NARRATIVE: CASE EVENT DATE: 20201109
